FAERS Safety Report 4457214-4 (Version None)
Quarter: 2004Q3

REPORT INFORMATION
  Report Type: 
  Country: None (occurrence: None)
  Receive Date: 20040921
  Receipt Date: 20040910
  Transmission Date: 20050211
  Serious: Yes (Hospitalization)
  Sender: FDA-Public Use
  Company Number: 2004195471US

PATIENT
  Age: 60 Year
  Sex: Female
  Weight: 73 kg

DRUGS (5)
  1. CAMPTOSAR [Suspect]
     Indication: SMALL CELL LUNG CANCER LIMITED STAGE
     Dosage: 81 MG, CYCLIC, DAYS 1 AND 8, IV
     Route: 042
     Dates: start: 20031020, end: 20031027
  2. CARBOPLATIN [Suspect]
     Indication: SMALL CELL LUNG CANCER LIMITED STAGE
     Dosage: 435 MG, DAY 1, CYLIC, IV
     Route: 042
     Dates: start: 20031020, end: 20031020
  3. NORVASC [Concomitant]
  4. ADVAIR DISKUS 100/50 [Concomitant]
  5. WARFARIN SODIUM [Concomitant]

REACTIONS (6)
  - DIARRHOEA [None]
  - FALL [None]
  - HAEMATOCRIT DECREASED [None]
  - LIVER FUNCTION TEST ABNORMAL [None]
  - NAUSEA [None]
  - VOMITING [None]
